FAERS Safety Report 8776073 (Version 2)
Quarter: 2012Q4

REPORT INFORMATION
  Report Type: 
  Country: US (occurrence: US)
  Receive Date: 20120910
  Receipt Date: 20121019
  Transmission Date: 20130627
  Serious: No
  Sender: FDA-Public Use
  Company Number: US-PFIZER INC-2012221202

PATIENT
  Age: 40 Year
  Sex: Female
  Weight: 63.49 kg

DRUGS (4)
  1. ZOLOFT [Suspect]
     Indication: PANIC ATTACK
     Dosage: 100mg in morning and 50mg at night
     Dates: start: 2007, end: 201201
  2. ZOLOFT [Suspect]
     Indication: ANXIETY
  3. SERTRALINE HCL [Suspect]
     Indication: PANIC ATTACK
     Dosage: 100mg in morning and 50mg at night
     Dates: start: 201202
  4. SERTRALINE HCL [Suspect]
     Indication: ANXIETY

REACTIONS (6)
  - Drug ineffective [Unknown]
  - Heart rate irregular [Unknown]
  - Irritable bowel syndrome [Unknown]
  - Drug ineffective [Unknown]
  - Pre-existing condition improved [Unknown]
  - Therapeutic response unexpected [Unknown]
